FAERS Safety Report 24084004 (Version 2)
Quarter: 2024Q3

REPORT INFORMATION
  Report Type: Report from Study
  Country: DE (occurrence: DE)
  Receive Date: 20240712
  Receipt Date: 20240828
  Transmission Date: 20241017
  Serious: Yes (Hospitalization, Other)
  Sender: GILEAD
  Company Number: DE-GILEAD-2024-0680293

PATIENT
  Age: 70 Year
  Sex: Female

DRUGS (1)
  1. SACITUZUMAB GOVITECAN-HZIY [Suspect]
     Active Substance: SACITUZUMAB GOVITECAN-HZIY
     Indication: Breast cancer
     Dosage: UNK
     Route: 065
     Dates: start: 2022

REACTIONS (2)
  - Disease progression [Unknown]
  - Diarrhoea [Recovered/Resolved]
